FAERS Safety Report 7687812-6 (Version None)
Quarter: 2011Q3

REPORT INFORMATION
  Report Type: 
  Country: None (occurrence: None)
  Receive Date: 20110817
  Receipt Date: 20110805
  Transmission Date: 20111222
  Serious: Yes (Other)
  Sender: FDA-Public Use
  Company Number: US-ELI_LILLY_AND_COMPANY-US201104006548

PATIENT
  Sex: Female

DRUGS (1)
  1. FORTEO [Suspect]
     Indication: OSTEOPOROSIS
     Dosage: 20 UG, QD
     Route: 065

REACTIONS (6)
  - PAIN [None]
  - MALAISE [None]
  - MEMORY IMPAIRMENT [None]
  - UPPER LIMB FRACTURE [None]
  - SPINAL FRACTURE [None]
  - HAND FRACTURE [None]
